FAERS Safety Report 15682730 (Version 1)
Quarter: 2018Q4

REPORT INFORMATION
  Report Type: Spontaneous
  Country: US (occurrence: US)
  Receive Date: 20181121
  Receipt Date: 20181121
  Transmission Date: 20190205
  Serious: No
  Sender: FDA-Public Use
  Company Number: None

PATIENT
  Age: 60 Year
  Sex: Male

DRUGS (1)
  1. MAVYRET [Suspect]
     Active Substance: GLECAPREVIR\PIBRENTASVIR
     Dates: start: 20180808, end: 20180905

REACTIONS (3)
  - Inability to afford medication [None]
  - Product use issue [None]
  - Therapy cessation [None]

NARRATIVE: CASE EVENT DATE: 20180901
